FAERS Safety Report 25278890 (Version 5)
Quarter: 2025Q2

REPORT INFORMATION
  Report Type: Spontaneous
  Country: US (occurrence: US)
  Receive Date: 20250507
  Receipt Date: 20250606
  Transmission Date: 20250717
  Serious: Yes (Disabling, Other)
  Sender: PFIZER
  Company Number: US-PFIZER INC-PV202400001718

PATIENT
  Age: 82 Year
  Sex: Female

DRUGS (4)
  1. IBRANCE [Suspect]
     Active Substance: PALBOCICLIB
     Indication: Breast cancer metastatic
     Dates: start: 201402, end: 20241231
  2. IBRANCE [Suspect]
     Active Substance: PALBOCICLIB
     Dates: end: 202504
  3. IBRANCE [Suspect]
     Active Substance: PALBOCICLIB
     Route: 048
     Dates: start: 201402
  4. LETROZOLE [Concomitant]
     Active Substance: LETROZOLE

REACTIONS (5)
  - Glaucoma [Not Recovered/Not Resolved]
  - Visual impairment [Not Recovered/Not Resolved]
  - Lethargy [Unknown]
  - Nausea [Unknown]
  - Cyclic vomiting syndrome [Unknown]
